FAERS Safety Report 8494706-5 (Version None)
Quarter: 2012Q2

REPORT INFORMATION
  Report Type: 
  Country: None (occurrence: None)
  Receive Date: 20120627
  Receipt Date: 20120618
  Transmission Date: 20120825
  Serious: Yes (Hospitalization)
  Sender: FDA-Public Use
  Company Number: AUR-APL-2012-02749

PATIENT
  Age: 20 Year
  Sex: Male

DRUGS (2)
  1. LEVOFLOXACIN [Suspect]
     Indication: TONSILLITIS
     Dosage: 500 MG (500 MG, 1 IN 1 D),ORAL
     Route: 048
     Dates: start: 20120511, end: 20120515
  2. PANTOPRAZOLE [Concomitant]

REACTIONS (2)
  - OCULAR HYPERAEMIA [None]
  - FACE OEDEMA [None]
